FAERS Safety Report 4571919-6 (Version None)
Quarter: 2005Q1

REPORT INFORMATION
  Report Type: 
  Country: None (occurrence: None)
  Receive Date: 20050202
  Receipt Date: 20050125
  Transmission Date: 20050727
  Serious: Yes (Other)
  Sender: FDA-Public Use
  Company Number: TPA2005A00072

PATIENT

DRUGS (1)
  1. PIOGLITAZONE HYDROCHLORIDE (PIOGLITAONE HYDROCHLORIDE) (30 MILLIGRAM, [Suspect]
     Dosage: 30 MG, 1 IN 1 D, PER ORAL
     Route: 048
     Dates: start: 20040920, end: 20041215

REACTIONS (1)
  - BLOOD CREATINE PHOSPHOKINASE INCREASED [None]
